FAERS Safety Report 9440293 (Version 3)
Quarter: 2014Q1

REPORT INFORMATION
  Report Type: Spontaneous
  Country: GB (occurrence: GB)
  Receive Date: 20130805
  Receipt Date: 20140101
  Transmission Date: 20141002
  Serious: Yes (Death)
  Sender: FDA-Public Use
  Company Number: PHFR2013GB004448

PATIENT
  Age: 65 Year
  Sex: Male

DRUGS (8)
  1. CLOZARIL [Suspect]
     Indication: SCHIZOPHRENIA
     Dosage: UNK
     Route: 048
     Dates: start: 19921112
  2. CLOZARIL [Suspect]
     Indication: OBSESSIVE-COMPULSIVE DISORDER
     Dosage: 300 MG, UNK
     Route: 048
     Dates: start: 20100727
  3. BENDROFLUMETHIAZIDE [Concomitant]
     Dosage: UNK UKN, UNK
     Dates: start: 20010607
  4. METFORMIN [Concomitant]
     Indication: DIABETES MELLITUS
     Dosage: UNK UKN, UNK
     Dates: start: 20011217
  5. RAMIPRIL [Concomitant]
     Dosage: UNK UKN, UNK
     Dates: start: 20011217
  6. AMLODIPINE [Concomitant]
     Dosage: UNK UKN, UNK
     Dates: start: 20050519
  7. SIMVASTATIN [Concomitant]
     Dosage: UNK UKN, UNK
     Dates: start: 20040421
  8. INSULIN [Concomitant]
     Dosage: UNK UKN, UNK
     Dates: start: 20050511

REACTIONS (4)
  - Death [Fatal]
  - White blood cell count increased [Unknown]
  - Neutrophil count increased [Unknown]
  - Platelet count increased [Unknown]
